FAERS Safety Report 13227378 (Version 1)
Quarter: 2017Q1

REPORT INFORMATION
  Report Type: Spontaneous
  Country: SE (occurrence: SE)
  Receive Date: 20170213
  Receipt Date: 20170213
  Transmission Date: 20170428
  Serious: Yes (Other)
  Sender: FDA-Public Use
  Company Number: SE-SA-2017SA022543

PATIENT
  Age: 24 Year
  Sex: Male

DRUGS (1)
  1. STILNOCT [Suspect]
     Active Substance: ZOLPIDEM TARTRATE
     Indication: INITIAL INSOMNIA
     Route: 048
     Dates: start: 20170124, end: 20170124

REACTIONS (3)
  - Tremor [Recovered/Resolved]
  - Paranoia [Recovered/Resolved]
  - Hallucination [Recovered/Resolved]

NARRATIVE: CASE EVENT DATE: 20170124
